FAERS Safety Report 23181432 (Version 1)
Quarter: 2023Q4

REPORT INFORMATION
  Report Type: Spontaneous
  Country: CN (occurrence: CN)
  Receive Date: 20231114
  Receipt Date: 20231114
  Transmission Date: 20240110
  Serious: Yes (Life-Threatening, Other)
  Sender: FDA-Public Use
  Company Number: CN-BAYER-2023A162737

PATIENT
  Age: 61 Year
  Sex: Female
  Weight: 55 kg

DRUGS (2)
  1. ULTRAVIST [Suspect]
     Active Substance: IOPROMIDE
     Indication: Mammogram
     Dosage: 70.7 ML, ONCE, DRIPPING SPEED 3ML/S
     Route: 042
     Dates: start: 20231101, end: 20231101
  2. ULTRAVIST [Suspect]
     Active Substance: IOPROMIDE
     Indication: Breast mass

REACTIONS (8)
  - Anaphylactic shock [Recovering/Resolving]
  - Depressed level of consciousness [Recovered/Resolved]
  - Altered state of consciousness [Recovered/Resolved]
  - Unresponsive to stimuli [Recovered/Resolved]
  - Vomiting [None]
  - Hypoaesthesia [None]
  - Blood pressure decreased [Recovered/Resolved]
  - Depressed mood [None]

NARRATIVE: CASE EVENT DATE: 20231101
